FAERS Safety Report 18368673 (Version 2)
Quarter: 2020Q4

REPORT INFORMATION
  Report Type: Spontaneous
  Country: US (occurrence: US)
  Receive Date: 20201010
  Receipt Date: 20201110
  Transmission Date: 20210114
  Serious: Yes (Hospitalization)
  Sender: FDA-Public Use
  Company Number: US-ABBVIE-20K-163-3599509-00

PATIENT
  Age: 56 Year
  Sex: Female

DRUGS (1)
  1. CREON [Suspect]
     Active Substance: PANCRELIPASE AMYLASE\PANCRELIPASE LIPASE\PANCRELIPASE PROTEASE
     Indication: PANCREATIC FAILURE
     Dosage: 2 CAPSULES EACH MEAL?DEPENDS ON NUMBER OF MEALS
     Route: 048
     Dates: start: 201906

REACTIONS (13)
  - Pancreatitis acute [Recovered/Resolved]
  - Fluid retention [Not Recovered/Not Resolved]
  - Peripancreatic fluid collection [Recovering/Resolving]
  - Oedematous pancreatitis [Unknown]
  - Pancreatitis [Recovered/Resolved]
  - Abdominal pain [Recovered/Resolved]
  - Gait disturbance [Recovered/Resolved]
  - Cholecystectomy [Recovered/Resolved]
  - Pancreatitis acute [Recovered/Resolved]
  - Fluid retention [Recovering/Resolving]
  - Abdominal rigidity [Recovered/Resolved]
  - Pancreatitis [Recovered/Resolved]
  - Abdominal distension [Recovering/Resolving]

NARRATIVE: CASE EVENT DATE: 201911
